FAERS Safety Report 6444261-6 (Version None)
Quarter: 2009Q4

REPORT INFORMATION
  Report Type: 
  Country: None (occurrence: None)
  Receive Date: 20091118
  Receipt Date: 20091110
  Transmission Date: 20100525
  Serious: Yes (Other)
  Sender: FDA-Public Use
  Company Number: US-ASTRAZENECA-2006UW20948

PATIENT
  Age: 18840 Day
  Sex: Female
  Weight: 90.7 kg

DRUGS (35)
  1. SEROQUEL [Suspect]
     Indication: SLEEP DISORDER
     Dosage: 25-300 MG
     Route: 048
     Dates: start: 20010827
  2. SEROQUEL [Suspect]
     Indication: AFFECTIVE DISORDER
     Dosage: 25-300 MG
     Route: 048
     Dates: start: 20010827
  3. SEROQUEL [Suspect]
     Indication: THINKING ABNORMAL
     Dosage: 25-300 MG
     Route: 048
     Dates: start: 20010827
  4. SEROQUEL [Suspect]
     Route: 048
     Dates: start: 20040101, end: 20040101
  5. SEROQUEL [Suspect]
     Route: 048
     Dates: start: 20040101, end: 20040101
  6. SEROQUEL [Suspect]
     Route: 048
     Dates: start: 20040101, end: 20040101
  7. ZYPREXA [Concomitant]
  8. TYLENOL (CAPLET) [Concomitant]
     Dosage: 325-1000 MG
     Route: 048
  9. NEURONTIN [Concomitant]
     Dosage: 400-600 MG
     Route: 048
  10. KLONOPIN [Concomitant]
     Dosage: 0.5-1 MG
     Route: 048
  11. COUMADIN [Concomitant]
     Dosage: 2-9 MG
     Route: 048
  12. LIPITOR [Concomitant]
     Dosage: 40-80 MG
     Route: 048
  13. TRAMADOL [Concomitant]
     Route: 048
  14. CELEXA [Concomitant]
     Dosage: 20-40 MG
     Route: 048
  15. ZOCOR [Concomitant]
     Route: 048
  16. TOPROL-XL [Concomitant]
     Route: 048
  17. DOXEPIN HCL [Concomitant]
     Dosage: 50-100 MG
     Route: 048
  18. LOVENOX [Concomitant]
     Dosage: 40-120 MG
     Route: 048
  19. ALBUTEROL [Concomitant]
     Dosage: 90 MCG- 2.5 MG
     Route: 048
  20. LEXAPRO [Concomitant]
     Dosage: 10-40 MG
     Route: 048
  21. PEPCID [Concomitant]
     Dosage: 20-40 MG
     Route: 048
  22. PROTONIX [Concomitant]
     Route: 048
  23. OXYCODONE HCL [Concomitant]
     Dosage: 5-40 MG
     Route: 048
  24. REMERON [Concomitant]
     Dosage: 15-60 MG
     Route: 048
  25. REGLAN [Concomitant]
     Route: 048
  26. NALTREXONE HYDROCHLORIDE [Concomitant]
     Route: 048
  27. DIPHENHYDRAMINE HCL [Concomitant]
     Dosage: 12.5-50 MG
     Route: 048
  28. PROMETHAZINE [Concomitant]
     Dosage: 12.5-25 MG
     Route: 048
  29. ATIVAN [Concomitant]
     Dosage: 1-2 MG
     Route: 048
  30. ADVAIR DISKUS 100/50 [Concomitant]
     Dosage: 250/50 MCG THREE TIMES A DAY
     Route: 048
  31. DEPAKOTE [Concomitant]
  32. FUROSEMIDE [Concomitant]
  33. METOLAZONE [Concomitant]
  34. PLAVIX [Concomitant]
  35. TOPROL-XL [Concomitant]
     Dates: start: 20020903

REACTIONS (3)
  - PANCREATITIS [None]
  - PANCREATITIS ACUTE [None]
  - PANCREATITIS CHRONIC [None]
